FAERS Safety Report 9476845 (Version 1)
Quarter: 2013Q3

REPORT INFORMATION
  Report Type: Spontaneous
  Country: US (occurrence: US)
  Receive Date: 20130826
  Receipt Date: 20130826
  Transmission Date: 20140515
  Serious: No
  Sender: FDA-Public Use
  Company Number: US-TARO-2013P1010704

PATIENT
  Sex: Female

DRUGS (1)
  1. CLOBETASOL PROPIONATE CREAM [Suspect]
     Dates: start: 20130514, end: 2013

REACTIONS (2)
  - Acarodermatitis [Unknown]
  - Application site rash [Unknown]
